FAERS Safety Report 20479523 (Version 1)
Quarter: 2022Q1

REPORT INFORMATION
  Report Type: Spontaneous
  Country: JM (occurrence: JM)
  Receive Date: 20220216
  Receipt Date: 20220216
  Transmission Date: 20220423
  Serious: Yes (Other)
  Sender: FDA-Public Use
  Company Number: JM-MLMSERVICE-20220128-3343949-1

PATIENT
  Age: 63 Year
  Sex: Male

DRUGS (3)
  1. MYCOPHENOLATE MOFETIL [Suspect]
     Active Substance: MYCOPHENOLATE MOFETIL
     Indication: Pemphigus
  2. PREDNISONE [Suspect]
     Active Substance: PREDNISONE
     Indication: Pemphigus
  3. RITUXIMAB [Suspect]
     Active Substance: RITUXIMAB
     Indication: Pemphigus
     Dosage: SINGLE COURSE OF ULTRA-LOW-DOSE (RITUXIMAB 100 MG INTRAVENOUSLY 2 WEEKS APART)
     Route: 042

REACTIONS (3)
  - Papilloma viral infection [Recovered/Resolved]
  - Anogenital warts [Recovered/Resolved]
  - Buschke-Lowenstein^s tumour [Recovered/Resolved]
